FAERS Safety Report 10082706 (Version 1)
Quarter: 2014Q2

REPORT INFORMATION
  Report Type: Spontaneous
  Country: US (occurrence: US)
  Receive Date: 20140416
  Receipt Date: 20140416
  Transmission Date: 20141212
  Serious: No
  Sender: FDA-Public Use
  Company Number: US-BAXTER-2014BAX017474

PATIENT
  Sex: Male

DRUGS (3)
  1. GAMMAGARD LIQUID [Suspect]
     Indication: PRODUCT USED FOR UNKNOWN INDICATION
     Route: 058
     Dates: start: 20140323
  2. GAMMAGARD LIQUID [Suspect]
     Route: 058
     Dates: start: 20140330
  3. OMNICEF [Concomitant]
     Indication: PRODUCT USED FOR UNKNOWN INDICATION

REACTIONS (3)
  - Cough [Unknown]
  - Increased bronchial secretion [Unknown]
  - Pyrexia [Unknown]
